FAERS Safety Report 12081274 (Version 1)
Quarter: 2016Q1

REPORT INFORMATION
  Report Type: Spontaneous
  Country: US (occurrence: US)
  Receive Date: 20160216
  Receipt Date: 20160216
  Transmission Date: 20160526
  Serious: No
  Sender: FDA-Public Use
  Company Number: US-ENDO PHARMACEUTICALS INC.-2015-004906

PATIENT
  Age: 67 Year
  Sex: Male

DRUGS (1)
  1. OXYCODONE HCL 5MG [Suspect]
     Active Substance: OXYCODONE
     Indication: PAIN
     Route: 048

REACTIONS (1)
  - Renal pain [Not Recovered/Not Resolved]

NARRATIVE: CASE EVENT DATE: 201511
